FAERS Safety Report 24428695 (Version 1)
Quarter: 2024Q4

REPORT INFORMATION
  Report Type: Spontaneous
  Country: FR (occurrence: FR)
  Receive Date: 20241011
  Receipt Date: 20241011
  Transmission Date: 20250114
  Serious: Yes (Other)
  Sender: CSL BEHRING
  Company Number: None

PATIENT
  Age: 80 Year
  Sex: Female
  Weight: 57.3 kg

DRUGS (11)
  1. PRIVIGEN [Suspect]
     Active Substance: HUMAN IMMUNOGLOBULIN G
     Dosage: C1 (3 UNITS/D)
     Route: 042
     Dates: start: 20240725
  2. PRIVIGEN [Suspect]
     Active Substance: HUMAN IMMUNOGLOBULIN G
     Dosage: C2 (2 UNITS/D)
     Route: 042
     Dates: start: 20240816
  3. PRIVIGEN [Suspect]
     Active Substance: HUMAN IMMUNOGLOBULIN G
     Dosage: C3 (2 UNITS/D)
     Route: 042
     Dates: start: 20240903
  4. PRIVIGEN [Suspect]
     Active Substance: HUMAN IMMUNOGLOBULIN G
     Dosage: C4 (2 UNITS/D)
     Route: 042
     Dates: start: 20240909
  5. NPLATE [Suspect]
     Active Substance: ROMIPLOSTIM
     Indication: Thrombocytopenia
     Dosage: C1 (8 UNITS/D)
     Route: 058
     Dates: start: 20240723
  6. NPLATE [Suspect]
     Active Substance: ROMIPLOSTIM
     Dosage: C2 (1 UNIT/D)
     Route: 058
     Dates: start: 20240817
  7. NPLATE [Suspect]
     Active Substance: ROMIPLOSTIM
     Dosage: C3 (1 UNIT/D)
     Route: 058
     Dates: start: 20240902
  8. NPLATE [Suspect]
     Active Substance: ROMIPLOSTIM
     Dosage: C4 (1 UNIT/D)
     Route: 058
     Dates: start: 20240910
  9. BROMAZEPAM [Concomitant]
     Active Substance: BROMAZEPAM
     Dosage: UNK
  10. CALCIFEDIOL [Concomitant]
     Active Substance: CALCIFEDIOL
     Dosage: UNK
  11. NEBIVOLOL [Concomitant]
     Active Substance: NEBIVOLOL
     Dosage: UNK

REACTIONS (1)
  - Alopecia [Not Recovered/Not Resolved]

NARRATIVE: CASE EVENT DATE: 20240701
